FAERS Safety Report 24916820 (Version 1)
Quarter: 2025Q1

REPORT INFORMATION
  Report Type: Spontaneous
  Country: ES (occurrence: ES)
  Receive Date: 20250203
  Receipt Date: 20250203
  Transmission Date: 20250409
  Serious: Yes (Hospitalization)
  Sender: DR REDDYS
  Company Number: None

PATIENT
  Age: 89 Year
  Sex: Male
  Weight: 75 kg

DRUGS (4)
  1. DAPTOMYCIN [Suspect]
     Active Substance: DAPTOMYCIN
     Indication: Urinary tract infection enterococcal
     Dosage: 500MG EVERY 24 HOURS
     Route: 042
     Dates: start: 20241105, end: 20241108
  2. PIPERACILLIN SODIUM\TAZOBACTAM SODIUM [Suspect]
     Active Substance: PIPERACILLIN SODIUM\TAZOBACTAM SODIUM
     Indication: Klebsiella test positive
     Dosage: 4.5G EVERY 12 HOURS
     Route: 042
     Dates: start: 20241105, end: 20241111
  3. AMOXICILLIN [Suspect]
     Active Substance: AMOXICILLIN
     Indication: Respiratory tract infection
     Dosage: 500MG EVERY 8 HOURS
     Route: 048
     Dates: start: 20241102, end: 20241104
  4. OMEPRAZOLE [Concomitant]
     Active Substance: OMEPRAZOLE
     Indication: Prophylaxis
     Dosage: 20MG EVERY 24 HOURS
     Route: 048
     Dates: start: 20241104, end: 20241108

REACTIONS (1)
  - Clostridium difficile colitis [Recovered/Resolved]

NARRATIVE: CASE EVENT DATE: 20241106
